FAERS Safety Report 6307333-2 (Version None)
Quarter: 2009Q3

REPORT INFORMATION
  Report Type: 
  Country: None (occurrence: None)
  Receive Date: 20090813
  Receipt Date: 20090730
  Transmission Date: 20100115
  Serious: Yes (Other)
  Sender: FDA-Public Use
  Company Number: US-JNJFOC-20081201151

PATIENT
  Sex: Female
  Weight: 64.01 kg

DRUGS (7)
  1. REMICADE [Suspect]
     Indication: RHEUMATOID ARTHRITIS
     Dosage: (VS0): MAINTENANCE THERAPY FOR 1 1/2 YRS, PRN THERAPY FOR 1 1/2 YRS. (VS1): TOTAL 77 INFUSIONS
     Route: 042
  2. PREVACID [Concomitant]
  3. LORTAB [Concomitant]
     Indication: PAIN
  4. FLEXERIL [Concomitant]
     Indication: INSOMNIA
  5. EFFEXOR [Concomitant]
     Dosage: TAKEN INTERMITENTLY
  6. ALBUTEROL [Concomitant]
     Indication: DYSPNOEA
     Route: 055
  7. ADVAIR HFA [Concomitant]
     Indication: DYSPNOEA
     Route: 055

REACTIONS (7)
  - ALOPECIA [None]
  - ASTHMA [None]
  - COLONIC POLYP [None]
  - DIARRHOEA [None]
  - HISTOPLASMOSIS [None]
  - RASH [None]
  - URINARY TRACT INFECTION [None]
